FAERS Safety Report 11179865 (Version 2)
Quarter: 2015Q4

REPORT INFORMATION
  Report Type: Spontaneous
  Country: US (occurrence: US)
  Receive Date: 20150611
  Receipt Date: 20151218
  Transmission Date: 20160304
  Serious: Yes (Hospitalization, Other)
  Sender: FDA-Public Use
  Company Number: US-BAYER-2015-302068

PATIENT
  Age: 30 Year
  Sex: Female
  Weight: 68.27 kg

DRUGS (1)
  1. MIRENA [Suspect]
     Active Substance: LEVONORGESTREL
     Indication: CONTRACEPTION
     Dosage: 20 MCG/24HR, CONT
     Route: 015
     Dates: start: 20100914, end: 20130607

REACTIONS (10)
  - Device dislocation [None]
  - Device issue [None]
  - Adnexa uteri mass [None]
  - Uterine perforation [None]
  - Ovarian cyst ruptured [Recovering/Resolving]
  - Ectopic pregnancy with contraceptive device [None]
  - Pain [None]
  - Drug ineffective [None]
  - Post procedural discomfort [None]
  - Injury [None]

NARRATIVE: CASE EVENT DATE: 2011
